FAERS Safety Report 4464559-0 (Version None)
Quarter: 2004Q3

REPORT INFORMATION
  Report Type: 
  Country: None (occurrence: None)
  Receive Date: 20040929
  Receipt Date: 20040915
  Transmission Date: 20050211
  Serious: Yes (Death)
  Sender: FDA-Public Use
  Company Number: 2004-BP-07451BP

PATIENT
  Sex: Female

DRUGS (1)
  1. SPIRIVA [Suspect]
     Dosage: 18 MCG (18 MCG), IH
     Route: 055
     Dates: start: 20040801, end: 20040826

REACTIONS (6)
  - DYSPHONIA [None]
  - HOARSENESS [None]
  - LUNG NEOPLASM MALIGNANT [None]
  - NEOPLASM [None]
  - RESPIRATORY FAILURE [None]
  - VOCAL CORD PARALYSIS [None]
